FAERS Safety Report 6818496-4 (Version None)
Quarter: 2010Q3

REPORT INFORMATION
  Report Type: 
  Country: None (occurrence: None)
  Receive Date: 20100706
  Receipt Date: 20080918
  Transmission Date: 20110219
  Serious: Yes (Other)
  Sender: FDA-Public Use
  Company Number: US-PFIZER INC-2008079147

PATIENT
  Sex: Male
  Weight: 22 kg

DRUGS (3)
  1. ZITHROMAX [Suspect]
     Indication: COUGH
     Dates: start: 20080827, end: 20080830
  2. ALL OTHER THERAPEUTIC PRODUCTS [Concomitant]
  3. QVAR 40 [Concomitant]

REACTIONS (3)
  - HYPERSENSITIVITY [None]
  - LIP SWELLING [None]
  - RASH [None]
